FAERS Safety Report 19735194 (Version 1)
Quarter: 2021Q3

REPORT INFORMATION
  Report Type: Spontaneous
  Country: SE (occurrence: SE)
  Receive Date: 20210823
  Receipt Date: 20210823
  Transmission Date: 20211014
  Serious: Yes (Disabling)
  Sender: FDA-Public Use
  Company Number: SE-ORGANON-O2108SWE001493

PATIENT
  Sex: Male

DRUGS (1)
  1. NASONEX [Suspect]
     Active Substance: MOMETASONE FUROATE
     Indication: NASAL CONGESTION
     Dosage: 50 MIKROGRAM/DOS
     Route: 045
     Dates: start: 20171116, end: 20190430

REACTIONS (1)
  - Atrophy [Not Recovered/Not Resolved]
